FAERS Safety Report 5017582-1 (Version None)
Quarter: 2006Q2

REPORT INFORMATION
  Report Type: 
  Country: None (occurrence: None)
  Receive Date: 20060601
  Receipt Date: 20060601
  Transmission Date: 20061013
  Serious: Yes (Other)
  Sender: FDA-Public Use
  Company Number: None

PATIENT
  Age: 13 Year
  Sex: Male
  Weight: 45.3597 kg

DRUGS (2)
  1. AMANTADINE HCL [Suspect]
     Indication: AUTISM
     Dosage: 100MG  1 AM - 1/2 PM  ORAL
     Route: 048
     Dates: start: 20020909
  2. AMANTADINE HCL [Suspect]
     Indication: MENTAL RETARDATION SEVERITY UNSPECIFIED
     Dosage: 100MG  1 AM - 1/2 PM  ORAL
     Route: 048
     Dates: start: 20020909

REACTIONS (4)
  - AGITATION [None]
  - DYSPHEMIA [None]
  - FLUSHING [None]
  - THERAPEUTIC RESPONSE UNEXPECTED WITH DRUG SUBSTITUTION [None]
